FAERS Safety Report 4479388-1 (Version None)
Quarter: 2004Q4

REPORT INFORMATION
  Report Type: 
  Country: None (occurrence: None)
  Receive Date: 20041020
  Receipt Date: 20010823
  Transmission Date: 20050328
  Serious: Yes (Death)
  Sender: FDA-Public Use
  Company Number: 200115993US

PATIENT
  Sex: Female
  Weight: 74 kg

DRUGS (20)
  1. ALLEGRA-D [Suspect]
     Indication: ASTHMA
     Dosage: DOSE: 60/120
     Route: 048
     Dates: start: 20010818, end: 20010818
  2. ALLEGRA-D [Suspect]
     Indication: HYPERSENSITIVITY
     Dosage: DOSE: 60/120
     Route: 048
     Dates: start: 20010818, end: 20010818
  3. FLONASE [Concomitant]
     Dosage: DOSE: NOT PROVIDED
  4. VASOTEC [Concomitant]
     Route: 048
     Dates: start: 20001227
  5. SEREVENT [Concomitant]
     Dosage: DOSE: NOT PROVIDED
  6. PULMICORT [Concomitant]
     Dosage: DOSE: NOT PROVIDED
  7. ATENOLOL [Concomitant]
     Dates: start: 20001214
  8. ESTRACE [Concomitant]
     Dates: start: 20010625
  9. ASPIRIN [Concomitant]
     Dosage: DOSE: UNK
  10. MULTIVITAMINS, PLAIN [Concomitant]
     Dosage: DOSE: UNK
  11. LEVAQUIN [Concomitant]
     Dosage: DOSE: UNK
     Dates: start: 20010414
  12. DIFLUCAN [Concomitant]
     Route: 048
     Dates: start: 20000926
  13. ROBITUSSIN WITH CODEINE [Concomitant]
     Dosage: DOSE: NOT PROVIDED
  14. NASAREL [Concomitant]
     Dosage: DOSE: NOT PROVIDED
  15. BENZONATATE [Concomitant]
     Dosage: DOSE: NOT PROVIDED
  16. TRIMOX [Concomitant]
     Route: 048
     Dates: start: 20000917
  17. COZAAR [Concomitant]
     Route: 048
     Dates: start: 20000926
  18. PROMETHAZINE W/ CODEINE [Concomitant]
     Dosage: DOSE: 6.25/10
     Route: 048
     Dates: start: 20001113
  19. TEQUIN [Concomitant]
     Route: 048
     Dates: start: 20001124
  20. LOTREL [Concomitant]
     Dosage: DOSE: 5/20
     Route: 048
     Dates: start: 20010305

REACTIONS (16)
  - ANAPHYLACTIC SHOCK [None]
  - ANAPHYLACTOID REACTION [None]
  - BLOOD AMYLASE INCREASED [None]
  - BLOOD GLUCOSE INCREASED [None]
  - CARDIAC ARREST [None]
  - CONVULSION [None]
  - DISSEMINATED INTRAVASCULAR COAGULATION [None]
  - HEPATIC ENZYME INCREASED [None]
  - HYPOTENSION [None]
  - LIPASE INCREASED [None]
  - MULTI-ORGAN FAILURE [None]
  - PYREXIA [None]
  - RENAL FAILURE ACUTE [None]
  - RESPIRATORY ARREST [None]
  - RHABDOMYOLYSIS [None]
  - WHITE BLOOD CELL COUNT INCREASED [None]
